FAERS Safety Report 9399173 (Version 1)
Quarter: 2013Q3

REPORT INFORMATION
  Report Type: Spontaneous
  Country: US (occurrence: US)
  Receive Date: 20130715
  Receipt Date: 20130715
  Transmission Date: 20140515
  Serious: Yes (Hospitalization)
  Sender: FDA-Public Use
  Company Number: US-BRISTOL-MYERS SQUIBB COMPANY-19098102

PATIENT
  Age: 62 Year
  Sex: Male

DRUGS (1)
  1. BYDUREON [Suspect]

REACTIONS (3)
  - Cardiac disorder [Unknown]
  - Injection site pain [Unknown]
  - Injection site mass [Unknown]
